FAERS Safety Report 5104856-9 (Version None)
Quarter: 2006Q3

REPORT INFORMATION
  Report Type: 
  Country: None (occurrence: None)
  Receive Date: 20060914
  Receipt Date: 20060413
  Transmission Date: 20061208
  Serious: Yes (Hospitalization)
  Sender: FDA-Public Use
  Company Number: JP-JPN-A200601214

PATIENT
  Age: 58 Year
  Sex: Female
  Weight: 65 kg

DRUGS (2)
  1. VALTREX [Suspect]
     Indication: HERPES ZOSTER
     Dosage: 1G THREE TIMES PER DAY
     Route: 048
     Dates: start: 20060410, end: 20060412
  2. EPADEL [Concomitant]
     Dosage: 1800MG PER DAY
     Route: 048
     Dates: start: 20060418

REACTIONS (8)
  - ASTHENIA [None]
  - CEREBRAL INFARCTION [None]
  - CHEST DISCOMFORT [None]
  - DYSARTHRIA [None]
  - DYSPHASIA [None]
  - HYPOAESTHESIA [None]
  - THROMBOTIC STROKE [None]
  - TRANSIENT ISCHAEMIC ATTACK [None]
